FAERS Safety Report 8860217 (Version 1)
Quarter: 2012Q4

REPORT INFORMATION
  Report Type: 
  Country: NO (occurrence: NO)
  Receive Date: 20121025
  Receipt Date: 20121025
  Transmission Date: 20130627
  Serious: Yes (Other)
  Sender: FDA-Public Use
  Company Number: PHHY2012NO094708

PATIENT
  Sex: Male

DRUGS (13)
  1. ZOMETA [Suspect]
     Indication: METASTASES TO BONE
     Dosage: UNK UKN, UNK
     Dates: start: 2005
  2. ACETYLSALICYLIC ACID [Concomitant]
     Dosage: 75 mg, QD
  3. ACTOS [Concomitant]
     Dosage: 30 mg, QD
  4. BURINEX [Concomitant]
     Dosage: 2 mg, BID
  5. CALCIGRAN FORTE [Concomitant]
     Dosage: 1 DF, QW2
  6. CODOXOL [Concomitant]
     Dosage: 1 DF, QD
  7. METOPROLOL [Concomitant]
     Dosage: 200 mg, QD
  8. PANTOPRAZOLE [Concomitant]
     Dosage: 40 mg, QD
  9. PREDNISOLONE [Concomitant]
     Dosage: 5 mg, BID
  10. RAMIPRIL [Concomitant]
     Dosage: 5 mg, BID
  11. TARGINIQ [Concomitant]
     Dosage: 1 DF, BID
  12. LAXOBERAL [Concomitant]
     Dosage: 20 gtt, QD
  13. ZOLADEX [Concomitant]
     Dosage: 1 DF, Q3MO

REACTIONS (3)
  - Osteonecrosis of jaw [Recovering/Resolving]
  - Pain in jaw [Recovering/Resolving]
  - Exposed bone in jaw [Recovering/Resolving]
